FAERS Safety Report 17848866 (Version 2)
Quarter: 2020Q2

REPORT INFORMATION
  Report Type: Spontaneous
  Country: JP (occurrence: JP)
  Receive Date: 20200602
  Receipt Date: 20200629
  Transmission Date: 20200714
  Serious: Yes (Hospitalization, Other)
  Sender: FDA-Public Use
  Company Number: JP-SA-2019SA259691

PATIENT

DRUGS (4)
  1. CERDELGA [Suspect]
     Active Substance: ELIGLUSTAT
     Indication: GAUCHER^S DISEASE
     Dosage: DAILY DOSE: 200 MG
     Route: 048
     Dates: start: 201908
  2. MOSAPRIDE CITRATE [Concomitant]
     Active Substance: MOSAPRIDE CITRATE
     Indication: GASTROOESOPHAGEAL REFLUX DISEASE
     Dosage: 1 DF, TID
     Route: 048
  3. PARIET [Concomitant]
     Active Substance: RABEPRAZOLE SODIUM
     Indication: GASTROOESOPHAGEAL REFLUX DISEASE
     Dosage: UNK
     Route: 065
  4. CERDELGA [Suspect]
     Active Substance: ELIGLUSTAT
     Dosage: DAILY DOSE: 200 MG
     Route: 048
     Dates: start: 20180221, end: 201904

REACTIONS (6)
  - Anaemia [Recovering/Resolving]
  - Haemoptysis [Recovering/Resolving]
  - Treatment noncompliance [Unknown]
  - Oesophageal carcinoma [Recovering/Resolving]
  - Vomiting [Recovering/Resolving]
  - Weight increased [Recovering/Resolving]

NARRATIVE: CASE EVENT DATE: 201908
